FAERS Safety Report 7258429-2 (Version None)
Quarter: 2011Q1

REPORT INFORMATION
  Report Type: 
  Country: None (occurrence: None)
  Receive Date: 20110129
  Receipt Date: 20100622
  Transmission Date: 20110831
  Serious: No
  Sender: FDA-Public Use
  Company Number: US-ABBOTT-10P-163-0652825-00

PATIENT
  Age: 56 Year
  Sex: Male

DRUGS (13)
  1. SIMVASTATIN [Concomitant]
     Indication: BLOOD CHOLESTEROL
  2. JANUVIA [Concomitant]
     Indication: DIABETES MELLITUS
  3. AMLODIPINE [Concomitant]
     Indication: BLOOD PRESSURE
  4. LIMBREL [Concomitant]
     Indication: MYALGIA
  5. METFORMIN [Concomitant]
     Indication: DIABETES MELLITUS
  6. ZALEPLON [Concomitant]
     Indication: INSOMNIA
  7. GLYBURIDE [Concomitant]
     Indication: DIABETES MELLITUS
  8. PERCOCET [Concomitant]
     Indication: PRODUCT USED FOR UNKNOWN INDICATION
     Dosage: 1-2 DAILY AS NEEDED
  9. HUMIRA [Suspect]
     Indication: RHEUMATOID ARTHRITIS
     Dates: start: 20100101
  10. COUMADIN [Concomitant]
     Indication: PRODUCT USED FOR UNKNOWN INDICATION
     Dosage: 1/2 PILL ON 23 JUN 2010- IS ADJUSTED PER LAB VALUES
  11. ENALAPRIL MALEATE [Concomitant]
     Indication: BLOOD PRESSURE
  12. HYDROCHLOROTHIAZIDE [Concomitant]
     Indication: BLOOD PRESSURE
  13. LYRICA [Concomitant]
     Indication: MYALGIA

REACTIONS (2)
  - THROMBOSIS [None]
  - PAIN IN EXTREMITY [None]
